FAERS Safety Report 4350002-9 (Version None)
Quarter: 2004Q2

REPORT INFORMATION
  Report Type: 
  Country: None (occurrence: None)
  Receive Date: 20040428
  Receipt Date: 20040428
  Transmission Date: 20050107
  Serious: Yes (Hospitalization)
  Sender: FDA-Public Use
  Company Number: None

PATIENT
  Sex: Male

DRUGS (12)
  1. ASPIRIN [Suspect]
     Indication: CEREBROVASCULAR ACCIDENT
     Dosage: 325 MG DAILY ORAL
     Route: 048
  2. CLOPIDOGREL BISULFATE [Suspect]
     Indication: CEREBROVASCULAR ACCIDENT
     Dosage: 75 MG DAILY ORAL
     Route: 048
  3. INSULIN [Concomitant]
  4. HEPARIN [Concomitant]
  5. METOPROLOL [Concomitant]
  6. LISINOPRIL [Concomitant]
  7. METOCLOPRAMIDE [Concomitant]
  8. LANSOPRAZOLE [Concomitant]
  9. LOPERAMIDE HCL [Concomitant]
  10. ACCUZYME [Concomitant]
  11. ALBUTEROL [Concomitant]
  12. APAP TAB [Concomitant]

REACTIONS (1)
  - UPPER GASTROINTESTINAL HAEMORRHAGE [None]
